FAERS Safety Report 6071888-6 (Version None)
Quarter: 2009Q1

REPORT INFORMATION
  Report Type: 
  Country: None (occurrence: None)
  Receive Date: 20090210
  Receipt Date: 20090130
  Transmission Date: 20090719
  Serious: Yes (Death)
  Sender: FDA-Public Use
  Company Number: JP-NOVOPROD-280812

PATIENT
  Age: 19 Year
  Sex: Male
  Weight: 30 kg

DRUGS (6)
  1. NOVOSEVEN [Suspect]
     Indication: ACQUIRED HAEMOPHILIA
     Dosage: 2.4 MG, UNK
     Route: 042
     Dates: start: 20081029
  2. NOVOSEVEN [Suspect]
     Dosage: 1.2 MG, UNK
     Dates: start: 20081029
  3. NOVOSEVEN [Suspect]
     Dosage: 3.6 MG, UNK
     Route: 042
     Dates: start: 20081029, end: 20081029
  4. CORTRIL                            /00028601/ [Concomitant]
     Dosage: 15 MG, QD
     Route: 048
     Dates: start: 20081008, end: 20081029
  5. THYRADIN S [Concomitant]
     Dosage: 12.5 MG, QD
     Route: 048
     Dates: start: 20081007, end: 20081029
  6. DESMOPRESSIN ACETATE [Concomitant]
     Dosage: 2.5 ML, UNK
     Dates: start: 20081007, end: 20081029

REACTIONS (2)
  - CARDIAC FAILURE [None]
  - HAEMORRHAGE [None]
